FAERS Safety Report 24826915 (Version 1)
Quarter: 2025Q1

REPORT INFORMATION
  Report Type: Spontaneous
  Country: IL (occurrence: IL)
  Receive Date: 20250109
  Receipt Date: 20250109
  Transmission Date: 20250409
  Serious: Yes (Life-Threatening, Other)
  Sender: GLAXOSMITHKLINE
  Company Number: IL-GSK-IL2025EME000762

PATIENT

DRUGS (3)
  1. LAMICTAL [Suspect]
     Active Substance: LAMOTRIGINE
     Indication: Product used for unknown indication
     Dates: start: 20241204
  2. LAMICTAL [Suspect]
     Active Substance: LAMOTRIGINE
  3. DEXTROAMPHETAMINE SACCHARATE, AMPHETAMINE ASPARTATE, DEXTROAMPHETAMINE [Concomitant]
     Active Substance: AMPHETAMINE ASPARTATE\AMPHETAMINE SULFATE\DEXTROAMPHETAMINE SACCHARATE\DEXTROAMPHETAMINE SULFATE
     Indication: Product used for unknown indication

REACTIONS (5)
  - Genital erosion [Unknown]
  - Ocular hyperaemia [Unknown]
  - Stevens-Johnson syndrome [Unknown]
  - Rash [Unknown]
  - Mucosal erosion [Unknown]
